FAERS Safety Report 9722955 (Version 1)
Quarter: 2013Q4

REPORT INFORMATION
  Report Type: Spontaneous
  Country: US (occurrence: None)
  Receive Date: 20131127
  Receipt Date: 20131127
  Transmission Date: 20140711
  Serious: Yes (Other)
  Sender: FDA-Public Use
  Company Number: None

PATIENT
  Age: 38 Year
  Sex: Female
  Weight: 95.26 kg

DRUGS (1)
  1. ADDERALL XR [Suspect]
     Indication: ATTENTION DEFICIT/HYPERACTIVITY DISORDER
     Dosage: 1 CAPSULE, TWICE DAILY TAKEN BY MOUTH
     Dates: start: 20130926, end: 20131026

REACTIONS (6)
  - Headache [None]
  - Dizziness [None]
  - Vertigo [None]
  - Mood swings [None]
  - Therapeutic response unexpected with drug substitution [None]
  - Product substitution issue [None]
